FAERS Safety Report 25728570 (Version 1)
Quarter: 2025Q3

REPORT INFORMATION
  Report Type: Report from Study
  Country: US (occurrence: US)
  Receive Date: 20250826
  Receipt Date: 20250826
  Transmission Date: 20251020
  Serious: Yes (Other)
  Sender: MYLAN
  Company Number: US-MYLANLABS-2025M1072396

PATIENT
  Age: 82 Year
  Sex: Female

DRUGS (5)
  1. YUPELRI [Suspect]
     Active Substance: REVEFENACIN
     Indication: Chronic obstructive pulmonary disease
     Dosage: 175 MICROGRAM, QD (ONCE DAILY VIA NEBULIZER)
     Dates: start: 20250806, end: 20250821
  2. ARFORMOTEROL [Concomitant]
     Active Substance: ARFORMOTEROL
  3. BUDESONIDE [Concomitant]
     Active Substance: BUDESONIDE
  4. LEVOTHYROXINE [Concomitant]
     Active Substance: LEVOTHYROXINE
  5. BUPROPION [Concomitant]
     Active Substance: BUPROPION

REACTIONS (3)
  - Dry mouth [Unknown]
  - Urinary retention [Unknown]
  - Dry eye [Unknown]

NARRATIVE: CASE EVENT DATE: 20250806
